FAERS Safety Report 20038151 (Version 1)
Quarter: 2021Q4

REPORT INFORMATION
  Report Type: Spontaneous
  Country: AT (occurrence: AT)
  Receive Date: 20211105
  Receipt Date: 20211105
  Transmission Date: 20220303
  Serious: Yes (Other)
  Sender: FDA-Public Use
  Company Number: AT-BEH-2021134256

PATIENT
  Age: 83 Year
  Sex: Male
  Weight: 83 kg

DRUGS (16)
  1. TRANEXAMIC ACID [Suspect]
     Active Substance: TRANEXAMIC ACID
     Indication: Product used for unknown indication
     Dosage: 1 GRAM, TOTAL
     Route: 065
  2. FACTOR XIII CONCENTRATE (HUMAN) [Suspect]
     Active Substance: FACTOR XIII CONCENTRATE (HUMAN)
     Indication: Traumatic haemorrhage
     Dosage: 1250 INTERNATIONAL UNIT, TOTAL (1250 INTERNATIONAL UNIT, TOT)
     Route: 065
  3. PROTHROMPLEX (FACTORS II, VII, IX, X, PROTEIN C) [Suspect]
     Active Substance: COAGULATION FACTOR IX HUMAN\COAGULATION FACTOR VII HUMAN\COAGULATION FACTOR X HUMAN\PROTEIN C\PROTHR
     Indication: Product used for unknown indication
     Dosage: 1250 INTERNATIONAL UNIT
     Route: 065
  4. HAEMOCOMPLETTAN P [Suspect]
     Active Substance: FIBRINOGEN HUMAN
     Indication: Traumatic haemorrhage
     Dosage: 2 GRAM, TOTAL (2 GRAM, TOT)
     Route: 065
  5. HAEMOCOMPLETTAN P [Suspect]
     Active Substance: FIBRINOGEN HUMAN
     Dosage: 2 GRAM
     Route: 065
  6. HAEMOCOMPLETTAN P [Suspect]
     Active Substance: FIBRINOGEN HUMAN
     Dosage: 4 GRAM, TOTAL (4 GRAM, TOT )
     Route: 065
  7. DABIGATRAN [Suspect]
     Active Substance: DABIGATRAN
     Indication: Atrial fibrillation
     Dosage: 220 MILLIGRAM, QD (110 MILLIGRAM, BID)
     Route: 065
  8. DABIGATRAN [Suspect]
     Active Substance: DABIGATRAN
     Indication: Pulmonary embolism
  9. DABIGATRAN [Suspect]
     Active Substance: DABIGATRAN
     Indication: Transient ischaemic attack
  10. IDARUCIZUMAB [Suspect]
     Active Substance: IDARUCIZUMAB
     Indication: Product used for unknown indication
     Dosage: 2.5 GRAM, TOTAL (2.5 UNK )
     Route: 065
  11. IDARUCIZUMAB [Suspect]
     Active Substance: IDARUCIZUMAB
     Dosage: 5 GRAM, TOTAL
     Route: 065
  12. NOREPINEPHRINE [Concomitant]
     Active Substance: NOREPINEPHRINE
     Dosage: UNK
     Route: 042
  13. GELATIN\POTASSIUM CHLORIDE\SODIUM CHLORIDE [Concomitant]
     Active Substance: GELATIN\POTASSIUM CHLORIDE\SODIUM CHLORIDE
     Dosage: 500 MILLILITER, TOTAL (500 MILLILITER, TOT)
     Route: 065
  14. GELATIN\POTASSIUM CHLORIDE\SODIUM CHLORIDE [Concomitant]
     Active Substance: GELATIN\POTASSIUM CHLORIDE\SODIUM CHLORIDE
     Dosage: 500 MILLILITER (500 UNK)
  15. CALCIUM CHLORIDE\MAGNESIUM CHLORIDE\POTASSIUM CHLORIDE\SODIUM ACETATE\ [Concomitant]
     Active Substance: CALCIUM CHLORIDE\MAGNESIUM CHLORIDE\POTASSIUM CHLORIDE\SODIUM ACETATE\SODIUM CHLORIDE
     Dosage: 500 MILLILITER, TOTAL
     Route: 065
  16. CALCIUM CHLORIDE\MAGNESIUM CHLORIDE\POTASSIUM CHLORIDE\SODIUM ACETATE\ [Concomitant]
     Active Substance: CALCIUM CHLORIDE\MAGNESIUM CHLORIDE\POTASSIUM CHLORIDE\SODIUM ACETATE\SODIUM CHLORIDE
     Dosage: 1500 MILLILITER, TOTAL (1500 MILLILITER, TOT)

REACTIONS (1)
  - Drug ineffective [Unknown]
